FAERS Safety Report 9349463 (Version 3)
Quarter: 2013Q2

REPORT INFORMATION
  Report Type: Spontaneous
  Country: US (occurrence: US)
  Receive Date: 20130614
  Receipt Date: 20130621
  Transmission Date: 20140414
  Serious: Yes (Death)
  Sender: FDA-Public Use
  Company Number: US-ACTELION-A-NJ2013-84619

PATIENT
  Age: 32 Year
  Sex: Female

DRUGS (3)
  1. VENTAVIS [Suspect]
     Indication: PULMONARY ARTERIAL HYPERTENSION
     Dosage: 5 MCG, 6 X DAILY
     Route: 055
     Dates: start: 20130226, end: 20130601
  2. SILDENAFIL [Concomitant]
  3. COUMADIN [Concomitant]

REACTIONS (3)
  - Aspiration [Fatal]
  - Cardiac arrest [Fatal]
  - Choking [Fatal]
